FAERS Safety Report 4909301-1 (Version None)
Quarter: 2006Q1

REPORT INFORMATION
  Report Type: 
  Country: None (occurrence: None)
  Receive Date: 20060213
  Receipt Date: 20060207
  Transmission Date: 20060701
  Serious: Yes (Other)
  Sender: FDA-Public Use
  Company Number: NL-AVENTIS-200611181GDDC

PATIENT
  Age: 80 Year
  Sex: Female
  Weight: 55 kg

DRUGS (1)
  1. FLAGYL [Suspect]
     Indication: FISTULA
     Route: 048
     Dates: start: 20050101, end: 20050101

REACTIONS (1)
  - COORDINATION ABNORMAL [None]
